FAERS Safety Report 12499902 (Version 1)
Quarter: 2016Q2

REPORT INFORMATION
  Report Type: Spontaneous
  Country: US (occurrence: None)
  Receive Date: 20160624
  Receipt Date: 20160624
  Transmission Date: 20160815
  Serious: Yes (Other)
  Sender: FDA-Public Use
  Company Number: None

PATIENT
  Age: 9 Year
  Sex: Female
  Weight: 43.91 kg

DRUGS (1)
  1. INTUNIV [Suspect]
     Active Substance: GUANFACINE HYDROCHLORIDE
     Indication: ATTENTION DEFICIT/HYPERACTIVITY DISORDER
     Dosage: QAM
     Route: 048
     Dates: start: 201504, end: 201603

REACTIONS (6)
  - Dyspnoea [None]
  - Insomnia [None]
  - Cold sweat [None]
  - Product substitution issue [None]
  - Heart rate increased [None]
  - Agitation [None]

NARRATIVE: CASE EVENT DATE: 20160325
